FAERS Safety Report 14202612 (Version 1)
Quarter: 2017Q4

REPORT INFORMATION
  Report Type: Spontaneous
  Country: US (occurrence: US)
  Receive Date: 20171118
  Receipt Date: 20171118
  Transmission Date: 20180321
  Serious: No
  Sender: FDA-Public Use
  Company Number: US-ACCORD-058279

PATIENT
  Age: 55 Year
  Sex: Male

DRUGS (9)
  1. TAMSULOSIN/TAMSULOSIN HYDROCHLORIDE [Concomitant]
  2. CAPECITABINE NORTHSTAR [Suspect]
     Active Substance: CAPECITABINE
     Indication: RECTAL CANCER
     Dosage: 2 TABLETS OF 150 MG TWICE DAILY
     Route: 048
     Dates: start: 20170703, end: 20170727
  3. HYDROMORPHONE/HYDROMORPHONE HYDROCHLORIDE [Concomitant]
  4. METHADONE [Concomitant]
     Active Substance: METHADONE HYDROCHLORIDE
  5. OMEPRAZOLE. [Concomitant]
     Active Substance: OMEPRAZOLE
  6. CAPECITABINE ACCORD [Suspect]
     Active Substance: CAPECITABINE
     Indication: RECTAL CANCER
     Dosage: 3 TABLETS OF 500 MG TWICE DAILY
     Route: 048
     Dates: start: 20170703, end: 20170727
  7. DRONABINOL. [Concomitant]
     Active Substance: DRONABINOL
  8. ONDANSETRON [Concomitant]
     Active Substance: ONDANSETRON
  9. OXYBUTYNIN. [Concomitant]
     Active Substance: OXYBUTYNIN CHLORIDE

REACTIONS (3)
  - Weight decreased [Recovered/Resolved]
  - Vomiting [Recovered/Resolved]
  - Decreased appetite [Recovered/Resolved]

NARRATIVE: CASE EVENT DATE: 20170727
